FAERS Safety Report 14207468 (Version 1)
Quarter: 2017Q4

REPORT INFORMATION
  Report Type: Spontaneous
  Country: US (occurrence: None)
  Receive Date: 20171120
  Receipt Date: 20171120
  Transmission Date: 20180321
  Serious: No
  Sender: FDA-Public Use
  Company Number: None

PATIENT
  Age: 75 Year
  Sex: Male
  Weight: 148.78 kg

DRUGS (1)
  1. ZYTIGA [Suspect]
     Active Substance: ABIRATERONE ACETATE
     Indication: METASTASIS
     Route: 048
     Dates: start: 20170921

REACTIONS (4)
  - Muscular weakness [None]
  - Depression [None]
  - Insomnia [None]
  - Dysgeusia [None]

NARRATIVE: CASE EVENT DATE: 20171001
